FAERS Safety Report 5337036-2 (Version None)
Quarter: 2007Q2

REPORT INFORMATION
  Report Type: 
  Country: None (occurrence: None)
  Receive Date: 20070523
  Receipt Date: 20070515
  Transmission Date: 20071010
  Serious: Yes (Hospitalization)
  Sender: FDA-Public Use
  Company Number: 6033368

PATIENT
  Age: 55 Year
  Sex: Male

DRUGS (7)
  1. CARDENSIEL 1.25 MG (TABLET) (BISOPROLOL FUMARATE) [Suspect]
     Indication: DRUG USE FOR UNKNOWN INDICATION
     Dosage: 1.25 MG ORAL
     Route: 048
     Dates: start: 20060701, end: 20060927
  2. CORDARONE [Suspect]
     Indication: DRUG USE FOR UNKNOWN INDICATION
     Dosage: 200 MG (200 MG, 1 D) ORAL
     Route: 048
     Dates: start: 20060505, end: 20060927
  3. DIGOXIN TAB [Suspect]
     Indication: DRUG USE FOR UNKNOWN INDICATION
     Dosage: 0.25 (0.25 MG, 1 D) ORAL
     Route: 048
     Dates: start: 20060701, end: 20060927
  4. INSULATARD (SOLUTION FOR INJECTION) (INSULIN INJECTION, ISOPHANE) [Concomitant]
  5. MOPRAL (CAPSULE) (OMEPRAZOLE) [Concomitant]
  6. ZESTRIL [Concomitant]
  7. FUROSEMIDE [Concomitant]

REACTIONS (2)
  - BRADYCARDIA [None]
  - DRUG INTERACTION [None]
